FAERS Safety Report 4597767-9 (Version None)
Quarter: 2005Q1

REPORT INFORMATION
  Report Type: 
  Country: None (occurrence: None)
  Receive Date: 20050125
  Receipt Date: 20040922
  Transmission Date: 20050727
  Serious: No
  Sender: FDA-Public Use
  Company Number: USA040876976

PATIENT
  Age: 81 Year
  Sex: Female
  Weight: 59 kg

DRUGS (7)
  1. FORTEO [Suspect]
     Indication: BONE DENSITY DECREASED
     Dosage: 20 UG/1 DAY
     Dates: start: 20040601
  2. NEXIUM [Concomitant]
  3. LASIX [Concomitant]
  4. ALDACTONE [Concomitant]
  5. LOTREL [Concomitant]
  6. ISOSORBIDE [Concomitant]
  7. SYNTHROID [Concomitant]

REACTIONS (3)
  - CHEST PAIN [None]
  - FALL [None]
  - PATELLA FRACTURE [None]
